FAERS Safety Report 24809601 (Version 2)
Quarter: 2025Q1

REPORT INFORMATION
  Report Type: Spontaneous
  Country: US (occurrence: US)
  Receive Date: 20250106
  Receipt Date: 20250106
  Transmission Date: 20250409
  Serious: Yes (Other)
  Sender: ROCHE
  Company Number: US-ROCHE-10000170498

PATIENT
  Age: 60 Year
  Sex: Male

DRUGS (2)
  1. ALTEPLASE [Suspect]
     Active Substance: ALTEPLASE
     Indication: Pleural effusion
     Route: 065
  2. DORNASE ALFA [Suspect]
     Active Substance: DORNASE ALFA
     Indication: Pleural effusion
     Route: 065

REACTIONS (4)
  - Status epilepticus [Unknown]
  - Gastritis bacterial [Unknown]
  - Off label use [Unknown]
  - Off label use [Unknown]
